FAERS Safety Report 8887171 (Version 2)
Quarter: 2012Q4

REPORT INFORMATION
  Report Type: 
  Country: BR (occurrence: BR)
  Receive Date: 20121105
  Receipt Date: 20121113
  Transmission Date: 20130627
  Serious: Yes (Other)
  Sender: FDA-Public Use
  Company Number: BR-PFIZER INC-2012270742

PATIENT
  Age: 13 Year
  Sex: Male
  Weight: 56 kg

DRUGS (1)
  1. GENOTROPIN [Suspect]
     Dosage: 2.8 daily
     Dates: start: 20121006, end: 20121021

REACTIONS (3)
  - Intracranial pressure increased [Not Recovered/Not Resolved]
  - Deafness [Not Recovered/Not Resolved]
  - Growth retardation [Not Recovered/Not Resolved]
